FAERS Safety Report 6639787-6 (Version None)
Quarter: 2010Q1

REPORT INFORMATION
  Report Type: 
  Country: None (occurrence: None)
  Receive Date: 20100318
  Receipt Date: 20091016
  Transmission Date: 20100710
  Serious: Yes (Other)
  Sender: FDA-Public Use
  Company Number: AU-SANOFI-AVENTIS-200921830GDDC

PATIENT
  Age: 84 Year
  Sex: Female

DRUGS (5)
  1. LEFLUNOMIDE [Suspect]
     Indication: RHEUMATOID ARTHRITIS
     Route: 048
     Dates: start: 20081120
  2. METHOTREXATE [Concomitant]
     Dosage: DOSE AS USED: UNK
  3. FOLIC ACID [Concomitant]
     Dosage: DOSE AS USED: UNK
  4. TRAMAL [Concomitant]
     Dosage: DOSE AS USED: UNK
  5. PARACETAMOL [Concomitant]
     Dosage: DOSE AS USED: UNK

REACTIONS (1)
  - SYNCOPE [None]
